FAERS Safety Report 11359624 (Version 1)
Quarter: 2015Q3

REPORT INFORMATION
  Report Type: Spontaneous
  Country: US (occurrence: None)
  Receive Date: 20150717
  Receipt Date: 20150717
  Transmission Date: 20151125
  Serious: Yes (Death, Other)
  Sender: FDA-Public Use
  Company Number: 2014AP003164

PATIENT
  Age: 17 Year
  Sex: Male

DRUGS (5)
  1. TACROLIMUS (TACROLIMUS) [Suspect]
     Active Substance: TACROLIMUS
     Indication: IMMUNOSUPPRESSANT DRUG THERAPY
  2. MYCOPHENOLATE MOFETIL (MYCOPHENOLATE) UNKNOWN [Suspect]
     Active Substance: MYCOPHENOLATE MOFETIL
     Indication: IMMUNOSUPPRESSANT DRUG THERAPY
  3. ANTIFUNGALS  FOR SYSTEMIC USE [Concomitant]
  4. ANTIBIOTICS [Concomitant]
     Active Substance: UNSPECIFIED INGREDIENT
  5. ACICLOVIR (ACICLOVIR) [Concomitant]
     Active Substance: ACYCLOVIR

REACTIONS (1)
  - Polyomavirus-associated nephropathy [None]
